FAERS Safety Report 6265875-2 (Version None)
Quarter: 2009Q3

REPORT INFORMATION
  Report Type: 
  Country: None (occurrence: None)
  Receive Date: 20090708
  Receipt Date: 20090708
  Transmission Date: 20100115
  Serious: Yes (Hospitalization)
  Sender: FDA-Public Use
  Company Number: None

PATIENT
  Sex: Male
  Weight: 67 kg

DRUGS (2)
  1. CISPLATIN [Suspect]
     Dosage: 140 MG
     Dates: end: 20090616
  2. TAXOTERE [Suspect]
     Dosage: 140 MG
     Dates: end: 20090616

REACTIONS (4)
  - COLITIS [None]
  - FEBRILE NEUTROPENIA [None]
  - RENAL IMPAIRMENT [None]
  - VOMITING [None]
